FAERS Safety Report 22238651 (Version 1)
Quarter: 2023Q2

REPORT INFORMATION
  Report Type: Spontaneous
  Country: US (occurrence: US)
  Receive Date: 20230421
  Receipt Date: 20230421
  Transmission Date: 20230721
  Serious: Yes (Other)
  Sender: FDA-Public Use
  Company Number: US-JNJFOC-20230428062

PATIENT
  Sex: Female

DRUGS (1)
  1. BENADRYL [Suspect]
     Active Substance: DIPHENHYDRAMINE HYDROCHLORIDE
     Indication: Anxiety
     Dosage: 4 TABLETS TAKE 10 TABLETS EVERY 4 HOURS.
     Route: 048
     Dates: start: 2016

REACTIONS (2)
  - Product use issue [Not Recovered/Not Resolved]
  - Drug dependence [Not Recovered/Not Resolved]
